FAERS Safety Report 4921362-2 (Version None)
Quarter: 2006Q1

REPORT INFORMATION
  Report Type: 
  Country: None (occurrence: None)
  Receive Date: 20060222
  Receipt Date: 20060222
  Transmission Date: 20060701
  Serious: Yes (Hospitalization)
  Sender: FDA-Public Use
  Company Number: None

PATIENT
  Age: 39 Year
  Sex: Female

DRUGS (13)
  1. WARFARIN [Suspect]
     Indication: CEREBROVASCULAR ACCIDENT
     Dosage: 1 MG DAILY  CHRONIC
  2. FLUCONAZOLE [Suspect]
     Indication: ANTIBIOTIC PROPHYLAXIS
  3. ZITHROMAX [Suspect]
     Indication: ANTIBIOTIC PROPHYLAXIS
  4. LISINOPRIL [Concomitant]
  5. LANOXIN [Concomitant]
  6. ATENOLOL [Concomitant]
  7. WARFARIN [Concomitant]
  8. ZITHROMAX [Concomitant]
  9. FLUCONAZOLE [Concomitant]
  10. ZERIT [Concomitant]
  11. VIRAMUNE [Concomitant]
  12. BACTRIM [Concomitant]
  13. ZITHROMAX [Concomitant]

REACTIONS (7)
  - ABSCESS [None]
  - DRUG DOSE OMISSION [None]
  - ECONOMIC PROBLEM [None]
  - HAEMORRHAGE [None]
  - INFECTED CYST [None]
  - INTERNATIONAL NORMALISED RATIO INCREASED [None]
  - WOUND SECRETION [None]
